FAERS Safety Report 11803492 (Version 1)
Quarter: 2015Q4

REPORT INFORMATION
  Report Type: Spontaneous
  Country: IT (occurrence: IT)
  Receive Date: 20151204
  Receipt Date: 20151204
  Transmission Date: 20160305
  Serious: Yes (Other)
  Sender: FDA-Public Use
  Company Number: IT-TEVA-612696ACC

PATIENT
  Age: 70 Year
  Sex: Male
  Weight: 65 kg

DRUGS (4)
  1. CALCIO LEVOFOLINATO TEVA - 175 MG POLVERE PER SOLUZIONE PER INFUSIONE [Concomitant]
     Active Substance: LEVOLEUCOVORIN CALCIUM
     Indication: COLON CANCER METASTATIC
     Dosage: 173 MG
     Route: 042
     Dates: start: 20150914, end: 20151026
  2. FLUOROURACIL. [Concomitant]
     Active Substance: FLUOROURACIL
     Indication: COLON CANCER METASTATIC
     Dosage: 600 MG
     Route: 042
     Dates: start: 20150914, end: 20151026
  3. FLUOROURACILE TEVA - 5 G/100 ML SOLUZIONE PER INFUSIONE [Concomitant]
     Active Substance: FLUOROURACIL
     Indication: COLON CANCER METASTATIC
     Dosage: 2000 MG
     Route: 042
     Dates: start: 20150914, end: 20151026
  4. OXALIPLATINO TEVA - 5 MG/ML CONCENTRATO PER SOLUZIONE PER INFUSIONE [Suspect]
     Active Substance: OXALIPLATIN
     Indication: COLON CANCER METASTATIC
     Dosage: 110 MG CYCLICAL
     Route: 042
     Dates: start: 20150914, end: 20151026

REACTIONS (3)
  - Choking [Recovered/Resolved]
  - Rash [Recovered/Resolved]
  - Paraesthesia oral [Recovered/Resolved]

NARRATIVE: CASE EVENT DATE: 20151026
